FAERS Safety Report 21616796 (Version 1)
Quarter: 2022Q4

REPORT INFORMATION
  Report Type: Spontaneous
  Country: US (occurrence: US)
  Receive Date: 20221118
  Receipt Date: 20221118
  Transmission Date: 20230112
  Serious: No
  Sender: FDA-Public Use
  Company Number: US-SA-SAC20221117000591

PATIENT
  Age: 60 Year
  Sex: Male

DRUGS (19)
  1. DUPIXENT [Suspect]
     Active Substance: DUPILUMAB
     Indication: Dermatitis atopic
     Dosage: 300 MG, QOW
     Route: 058
     Dates: start: 20220415
  2. ACYCLOVIR [Concomitant]
     Active Substance: ACYCLOVIR
  3. ANASTROZOLE [Concomitant]
     Active Substance: ANASTROZOLE
  4. AZITHROMYCIN [Concomitant]
     Active Substance: AZITHROMYCIN
  5. BACLOFEN [Concomitant]
     Active Substance: BACLOFEN
  6. BUPROPION [Concomitant]
     Active Substance: BUPROPION
  7. CLOBETASOL [Concomitant]
     Active Substance: CLOBETASOL
  8. FLUOCINONIDE [Concomitant]
     Active Substance: FLUOCINONIDE
  9. MORPHINE SULFATE [Concomitant]
     Active Substance: MORPHINE SULFATE
  10. OMEPRAZOLE [Concomitant]
     Active Substance: OMEPRAZOLE
  11. OXYCODONE [Concomitant]
     Active Substance: OXYCODONE
  12. PIMECROLIMUS [Concomitant]
     Active Substance: PIMECROLIMUS
  13. PREDNISONE [Concomitant]
     Active Substance: PREDNISONE
  14. SERTRALINE [Concomitant]
     Active Substance: SERTRALINE HYDROCHLORIDE
  15. SILDENAFIL [Concomitant]
     Active Substance: SILDENAFIL
  16. VENTOLIN HFA [Concomitant]
     Active Substance: ALBUTEROL SULFATE
  17. ZOLPIDEM [Concomitant]
     Active Substance: ZOLPIDEM TARTRATE
  18. TRIAMCINOLONE [Concomitant]
     Active Substance: TRIAMCINOLONE
  19. AZELASTINE HYDROCHLORIDE\FLUTICASONE PROPIONATE [Concomitant]
     Active Substance: AZELASTINE HYDROCHLORIDE\FLUTICASONE PROPIONATE

REACTIONS (2)
  - Infection [Unknown]
  - Drug ineffective [Unknown]
